FAERS Safety Report 5279754-0 (Version None)
Quarter: 2007Q1

REPORT INFORMATION
  Report Type: 
  Country: None (occurrence: None)
  Receive Date: 20061208
  Receipt Date: 20050527
  Transmission Date: 20070707
  Serious: Yes (Hospitalization)
  Sender: FDA-Public Use
  Company Number: 2005UW01213

PATIENT
  Age: 55 Year
  Sex: Female
  Weight: 64.8644 kg

DRUGS (2)
  1. CRESTOR [Suspect]
     Indication: BLOOD CHOLESTEROL
     Dosage: 5 MG DAILY PO
     Route: 048
     Dates: start: 20040909, end: 20041019
  2. ACTONEL [Concomitant]

REACTIONS (4)
  - BACK PAIN [None]
  - BLOOD PRESSURE INCREASED [None]
  - CHEST PAIN [None]
  - MUSCLE SPASMS [None]
